FAERS Safety Report 5523040-8 (Version None)
Quarter: 2007Q4

REPORT INFORMATION
  Report Type: 
  Country: None (occurrence: None)
  Receive Date: 20071119
  Receipt Date: 20071119
  Transmission Date: 20080405
  Serious: Yes (Hospitalization)
  Sender: FDA-Public Use
  Company Number: None

PATIENT
  Age: 64 Year
  Sex: Male

DRUGS (2)
  1. FUROSEMIDE [Suspect]
     Indication: HYPERTENSION
     Dosage: 20MG BID PO
     Route: 048
     Dates: start: 20071011, end: 20071012
  2. SPIRONOLACTONE [Suspect]
     Dosage: 25MG EVERY DAY PO
     Route: 048
     Dates: start: 20071010, end: 20071012

REACTIONS (1)
  - SYNCOPE [None]
